FAERS Safety Report 9525710 (Version 2)
Quarter: 2013Q4

REPORT INFORMATION
  Report Type: Spontaneous
  Country: US (occurrence: US)
  Receive Date: 20130916
  Receipt Date: 20131107
  Transmission Date: 20140711
  Serious: No
  Sender: FDA-Public Use
  Company Number: US-B.I. PHARMACEUTICALS,INC./RIDGEFIELD-2013-BI-27712BP

PATIENT
  Age: 88 Year
  Sex: Male
  Weight: 79 kg

DRUGS (6)
  1. SPIRIVA [Suspect]
     Indication: CHRONIC OBSTRUCTIVE PULMONARY DISEASE
     Dosage: 18 MCG
     Route: 055
     Dates: start: 20130901
  2. VALSARTAN [Concomitant]
  3. TAMSULOSIN [Concomitant]
  4. FINASTERIDE [Concomitant]
  5. AMLODIPINE [Concomitant]
     Indication: GASTROOESOPHAGEAL REFLUX DISEASE
  6. ATORVASTATIN [Concomitant]

REACTIONS (3)
  - Decreased appetite [Not Recovered/Not Resolved]
  - Lethargy [Not Recovered/Not Resolved]
  - Coordination abnormal [Not Recovered/Not Resolved]
